FAERS Safety Report 4437660-5 (Version None)
Quarter: 2004Q3

REPORT INFORMATION
  Report Type: 
  Country: None (occurrence: None)
  Receive Date: 20040831
  Receipt Date: 20040824
  Transmission Date: 20050211
  Serious: Yes (Other)
  Sender: FDA-Public Use
  Company Number: PHBS2004US11193

PATIENT
  Age: 24 Year
  Sex: Male
  Weight: 100 kg

DRUGS (6)
  1. CYCLOSPORINE [Suspect]
     Indication: APLASIA PURE RED CELL
     Dosage: 6 MG/KG, BID
     Route: 042
  2. CYCLOSPORINE [Suspect]
     Dosage: 8 MG/KG/D
     Route: 042
  3. PREDNISONE [Concomitant]
     Dosage: 1 MG/KG/D
     Route: 048
  4. ANTITHYMOCYTE IMMUNOGLOBULIN [Suspect]
     Dosage: 4000 MG/D
  5. METHYLPREDNISOLONE [Suspect]
     Dosage: 125 MG/D
     Route: 042
  6. BLOOD CELLS, PACKED HUMAN [Concomitant]

REACTIONS (9)
  - ATRIAL FIBRILLATION [None]
  - DRUG LEVEL INCREASED [None]
  - DRUG TOXICITY [None]
  - ELECTROLYTE IMBALANCE [None]
  - GRAND MAL CONVULSION [None]
  - HYPOTENSION [None]
  - NEUROTOXICITY [None]
  - TACHYCARDIA [None]
  - TRICUSPID VALVE INCOMPETENCE [None]
